FAERS Safety Report 5916613-1 (Version None)
Quarter: 2008Q3

REPORT INFORMATION
  Report Type: 
  Country: None (occurrence: None)
  Receive Date: 20080909
  Receipt Date: 20080204
  Transmission Date: 20090109
  Serious: Yes (Death)
  Sender: FDA-Public Use
  Company Number: 163-20785-07120091

PATIENT
  Age: 65 Year
  Sex: Female

DRUGS (3)
  1. THALOMID [Suspect]
     Indication: MULTIPLE MYELOMA
     Dosage: 100 MG, 2 IN 1 D, ORAL ; 50MG/100MG/200MG, ORAL ; 100MG/150MG/200MG, DAILY, ORAL
     Route: 048
     Dates: start: 20040224, end: 20051101
  2. THALOMID [Suspect]
     Indication: MULTIPLE MYELOMA
     Dosage: 100 MG, 2 IN 1 D, ORAL ; 50MG/100MG/200MG, ORAL ; 100MG/150MG/200MG, DAILY, ORAL
     Route: 048
     Dates: start: 20070711, end: 20070101
  3. THALOMID [Suspect]
     Indication: MULTIPLE MYELOMA
     Dosage: 100 MG, 2 IN 1 D, ORAL ; 50MG/100MG/200MG, ORAL ; 100MG/150MG/200MG, DAILY, ORAL
     Route: 048
     Dates: start: 20061103, end: 20070601

REACTIONS (1)
  - MULTIPLE MYELOMA [None]
